FAERS Safety Report 24572101 (Version 1)
Quarter: 2024Q4

REPORT INFORMATION
  Report Type: Spontaneous
  Country: US (occurrence: None)
  Receive Date: 20241031
  Receipt Date: 20241031
  Transmission Date: 20250115
  Serious: Yes (Life-Threatening, Hospitalization)
  Sender: Public
  Company Number: None

PATIENT
  Age: 71 Year
  Sex: Male
  Weight: 98 kg

DRUGS (2)
  1. PIPERACILLIN AND TAZOBACTAM [Suspect]
     Active Substance: PIPERACILLIN SODIUM\TAZOBACTAM SODIUM
     Indication: Upper respiratory tract infection
     Dosage: OTHER FREQUENCY : ONCE;?
     Route: 042
     Dates: start: 20240624, end: 20240624
  2. IOHEXOL [Suspect]
     Active Substance: IOHEXOL
     Dates: start: 20240624, end: 20240624

REACTIONS (2)
  - Anaphylactic reaction [None]
  - Erythema multiforme [None]

NARRATIVE: CASE EVENT DATE: 20240624
